FAERS Safety Report 16655296 (Version 1)
Quarter: 2019Q3

REPORT INFORMATION
  Report Type: Spontaneous
  Country: GB (occurrence: GB)
  Receive Date: 20190801
  Receipt Date: 20190801
  Transmission Date: 20191004
  Serious: Yes (Hospitalization, Other)
  Sender: FDA-Public Use
  Company Number: GB-AUROBINDO-AUR-APL-2019-044604

PATIENT

DRUGS (14)
  1. PARACETAMOL [Suspect]
     Active Substance: ACETAMINOPHEN
     Indication: POST-TRAUMATIC PAIN
     Dosage: 1 GRAM
     Route: 042
     Dates: start: 20190202
  2. CYCLIZINE [Concomitant]
     Active Substance: CYCLIZINE
     Indication: MALAISE
     Dosage: 50 MILLIGRAM, AS NEEDED
     Route: 048
     Dates: start: 20190203
  3. PARACETAMOL [Concomitant]
     Active Substance: ACETAMINOPHEN
     Indication: PAIN
     Dosage: 500 MILLIGRAM, FOUR TIMES/DAY
     Route: 048
     Dates: start: 20190203
  4. PENTHROX [Suspect]
     Active Substance: METHOXYFLURANE
     Indication: POST-TRAUMATIC PAIN
     Dosage: UNK, 1 VIAL (3 ML)
     Route: 055
     Dates: start: 20190202, end: 20190202
  5. OCTENISAN [Concomitant]
     Indication: ANTIBIOTIC PROPHYLAXIS
     Dosage: UNK, 1 APPLICATION IN THE MORNING
     Route: 003
     Dates: start: 20190203
  6. ONDANSETRON [Concomitant]
     Active Substance: ONDANSETRON
     Indication: VOMITING
     Dosage: 4 MILLIGRAM, AS NEEDED
     Route: 048
     Dates: start: 20190204
  7. ENOXAPARIN [Concomitant]
     Active Substance: ENOXAPARIN
     Indication: COAGULOPATHY
     Dosage: 40 MILLIGRAM, DAILY
     Route: 058
     Dates: start: 20190203
  8. FORTISIP COMPACT [Concomitant]
     Active Substance: CARBOHYDRATES\FATTY ACIDS\MINERALS\PROTEIN\VITAMINS
     Indication: PRODUCT USED FOR UNKNOWN INDICATION
     Dosage: 125 MILLILITER, TWO TIMES A DAY
     Route: 048
     Dates: start: 20190202
  9. OXYCODONE [Concomitant]
     Active Substance: OXYCODONE
     Indication: PAIN
     Dosage: 5 MILLILITER, EVERY FOUR HOURS AS NEEDED
     Route: 048
     Dates: start: 20190211
  10. GAVISCON [Concomitant]
     Active Substance: ALUMINUM HYDROXIDE\MAGNESIUM CARBONATE
     Indication: DYSPEPSIA
     Dosage: 10 MILLILITER, FOUR TIMES/DAY
     Route: 048
     Dates: start: 20190211
  11. PHOSPHATE [Concomitant]
     Active Substance: UNSPECIFIED INGREDIENT
     Indication: CONSTIPATION
     Dosage: UNK, 1 ENEMA AS NEEDED
     Route: 054
     Dates: start: 20190207
  12. MORPHINE [Suspect]
     Active Substance: MORPHINE
     Indication: POST-TRAUMATIC PAIN
     Dosage: 5 MILLIGRAM
     Route: 065
     Dates: start: 20190202
  13. SODIUM CHLORIDE. [Concomitant]
     Active Substance: SODIUM CHLORIDE
     Indication: FLUID REPLACEMENT
     Dosage: 10 MILLILITER, AS NEEDED
     Route: 042
     Dates: start: 20190202
  14. MORPHINE [Concomitant]
     Active Substance: MORPHINE
     Indication: ANALGESIC THERAPY
     Dosage: 5 MILLIGRAM, TWO TIMES A DAY
     Route: 048
     Dates: start: 20190207

REACTIONS (2)
  - Pneumonia [Unknown]
  - Liver function test abnormal [Recovered/Resolved]

NARRATIVE: CASE EVENT DATE: 201902
